FAERS Safety Report 24409790 (Version 1)
Quarter: 2024Q4

REPORT INFORMATION
  Report Type: Spontaneous
  Country: US (occurrence: US)
  Receive Date: 20241008
  Receipt Date: 20241008
  Transmission Date: 20250114
  Serious: Yes (Hospitalization, Other)
  Sender: AZURITY PHARMACEUTICALS
  Company Number: US-AZURITY PHARMACEUTICALS, INC.-AZR202409-000748

PATIENT
  Age: 45 Year
  Sex: Male

DRUGS (2)
  1. BACLOFEN [Suspect]
     Active Substance: BACLOFEN
     Indication: Multiple sclerosis
     Dosage: UNK
     Route: 037
  2. BACLOFEN [Suspect]
     Active Substance: BACLOFEN
     Dosage: 20 MILLILITER, UNK
     Route: 037

REACTIONS (7)
  - Cardiac arrest [Unknown]
  - Electrocardiogram QT prolonged [Recovered/Resolved]
  - Mental status changes [Unknown]
  - Respiratory depression [Unknown]
  - Respiratory acidosis [Unknown]
  - Accidental overdose [Unknown]
  - Device infusion issue [Unknown]
